FAERS Safety Report 19031973 (Version 1)
Quarter: 2021Q1

REPORT INFORMATION
  Report Type: Spontaneous
  Country: US (occurrence: US)
  Receive Date: 20210319
  Receipt Date: 20210319
  Transmission Date: 20210420
  Serious: No
  Sender: FDA-Public Use
  Company Number: US-SA-2021SA092777

PATIENT
  Sex: Female

DRUGS (1)
  1. DUPIXENT [Suspect]
     Active Substance: DUPILUMAB
     Indication: ASTHMA
     Dosage: 300 MG, QOW
     Route: 058
     Dates: start: 20191201

REACTIONS (6)
  - Pyrexia [Unknown]
  - Eczema [Unknown]
  - Pain [Unknown]
  - COVID-19 immunisation [Unknown]
  - Sinusitis [Unknown]
  - Product use issue [Unknown]
